FAERS Safety Report 4317020-8 (Version None)
Quarter: 2004Q1

REPORT INFORMATION
  Report Type: 
  Country: None (occurrence: None)
  Receive Date: 20040315
  Receipt Date: 20040301
  Transmission Date: 20041129
  Serious: Yes (Other)
  Sender: FDA-Public Use
  Company Number: HQWYE503803MAR04

PATIENT
  Age: 75 Year
  Sex: Female
  Weight: 63.56 kg

DRUGS (5)
  1. INDERAL LA [Suspect]
     Indication: HYPERTENSION
     Dosage: 160 MG 1X PER 1 DAY, ORAL
     Route: 048
  2. HYDROCHLOROTHIAZIDE [Concomitant]
  3. MULTIVITAMINS, PLAIN (MULTIVITAMINS, PLAIN) [Concomitant]
  4. CELEBREX [Concomitant]
  5. GLUCOSAMINE (GLUCOSAMINE) [Concomitant]

REACTIONS (1)
  - ABDOMINAL ADHESIONS [None]
